FAERS Safety Report 11305638 (Version 1)
Quarter: 2015Q3

REPORT INFORMATION
  Report Type: Spontaneous
  Country: US (occurrence: US)
  Receive Date: 20150723
  Receipt Date: 20150723
  Transmission Date: 20151125
  Serious: No
  Sender: FDA-Public Use
  Company Number: US-JNJFOC-20150521469

PATIENT
  Age: 59 Year
  Sex: Female
  Weight: 40.82 kg

DRUGS (2)
  1. ZYRTEC [Suspect]
     Active Substance: CETIRIZINE HYDROCHLORIDE
     Indication: HYPERSENSITIVITY
     Route: 048
     Dates: start: 20150509, end: 20150509
  2. ZYRTEC [Suspect]
     Active Substance: CETIRIZINE HYDROCHLORIDE
     Route: 048

REACTIONS (3)
  - Diarrhoea [Recovered/Resolved]
  - Off label use [Recovered/Resolved]
  - Sinus headache [Recovered/Resolved]

NARRATIVE: CASE EVENT DATE: 20150509
